FAERS Safety Report 24745927 (Version 1)
Quarter: 2024Q4

REPORT INFORMATION
  Report Type: Spontaneous
  Country: KR (occurrence: KR)
  Receive Date: 20241218
  Receipt Date: 20241218
  Transmission Date: 20250115
  Serious: Yes (Other)
  Sender: ALEXION PHARMACEUTICALS
  Company Number: KR-ASTRAZENECA-202412KOR004098KR

PATIENT
  Age: 56 Year

DRUGS (5)
  1. TAGRISSO [Suspect]
     Active Substance: OSIMERTINIB
     Indication: Non-small cell lung cancer
     Dosage: UNK
     Route: 065
  2. AMIVANTAMAB [Concomitant]
     Active Substance: AMIVANTAMAB
  3. LAZERTINIB [Concomitant]
     Active Substance: LAZERTINIB
  4. PEMETREXED [Concomitant]
     Active Substance: PEMETREXED
     Dosage: STRENGTH: 25 MILLIGRAM PER MILLILITRE
  5. CARBOPLATIN [Concomitant]
     Active Substance: CARBOPLATIN
     Dosage: UNK

REACTIONS (1)
  - Malignant neoplasm progression [Unknown]
